FAERS Safety Report 7841788-7 (Version None)
Quarter: 2011Q4

REPORT INFORMATION
  Report Type: 
  Country: None (occurrence: None)
  Receive Date: 20111024
  Receipt Date: 20111024
  Transmission Date: 20120403
  Serious: Yes (Disabling)
  Sender: FDA-Public Use
  Company Number: None

PATIENT
  Age: 53 Year
  Sex: Female
  Weight: 61.2356 kg

DRUGS (1)
  1. ZYCLARA [Suspect]
     Indication: PRECANCEROUS CELLS PRESENT
     Dosage: 1 PACKET BEDTIME TOPICALLY  DEC 18 - 24
     Route: 061

REACTIONS (3)
  - EYELID OEDEMA [None]
  - SKIN DISCOLOURATION [None]
  - PERIORBITAL DISORDER [None]
